FAERS Safety Report 8208226 (Version 5)
Quarter: 2012Q4

REPORT INFORMATION
  Report Type: Report from Study
  Country: US (occurrence: US)
  Receive Date: 20111028
  Receipt Date: 20121017
  Transmission Date: 20130627
  Serious: Yes (Hospitalization, Other)
  Sender: FDA-Public Use
  Company Number: US-JNJFOC-20111011758

PATIENT
  Age: 4 Year
  Sex: Male
  Weight: 18.05 kg

DRUGS (2)
  1. CISAPRIDE [Suspect]
     Indication: GASTROOESOPHAGEAL REFLUX DISEASE
     Dosage: 1.4 cc/mg
     Route: 048
     Dates: start: 20110101, end: 20111024
  2. CISAPRIDE [Suspect]
     Indication: GASTROOESOPHAGEAL REFLUX DISEASE
     Dosage: 1.4 cc/mg
     Route: 048
     Dates: start: 20111027

REACTIONS (4)
  - Dehydration [Recovered/Resolved]
  - Food intolerance [Recovered/Resolved]
  - Diarrhoea [Recovered/Resolved]
  - Gastrointestinal stoma complication [Recovered/Resolved]
